FAERS Safety Report 21577684 (Version 1)
Quarter: 2022Q4

REPORT INFORMATION
  Report Type: Spontaneous
  Country: US (occurrence: None)
  Receive Date: 20221109
  Receipt Date: 20221109
  Transmission Date: 20230113
  Serious: Yes (Other)
  Sender: FDA-Public Use
  Company Number: None

PATIENT
  Age: 56 Year
  Sex: Female

DRUGS (1)
  1. KRYSTEXXA [Suspect]
     Active Substance: PEGLOTICASE

REACTIONS (4)
  - Dysphonia [None]
  - Erythema [None]
  - Hot flush [None]
  - Muscle spasms [None]

NARRATIVE: CASE EVENT DATE: 20221108
